FAERS Safety Report 6632341-1 (Version None)
Quarter: 2010Q1

REPORT INFORMATION
  Report Type: 
  Country: None (occurrence: None)
  Receive Date: 20100312
  Receipt Date: 20100311
  Transmission Date: 20100710
  Serious: Yes (Life-Threatening)
  Sender: FDA-Public Use
  Company Number: D0066608A

PATIENT
  Sex: Male
  Weight: 75 kg

DRUGS (3)
  1. REQUIP [Suspect]
     Indication: PARKINSON'S DISEASE
     Dosage: 2MG PER DAY
     Route: 048
     Dates: start: 20100119, end: 20100208
  2. AZILECT [Concomitant]
     Indication: PARKINSON'S DISEASE
     Dosage: 1MG PER DAY
     Route: 048
     Dates: start: 20091201
  3. MADOPAR [Concomitant]
     Indication: PARKINSON'S DISEASE
     Dosage: 125MG THREE TIMES PER DAY
     Route: 048
     Dates: start: 20091201

REACTIONS (2)
  - ROAD TRAFFIC ACCIDENT [None]
  - SUDDEN ONSET OF SLEEP [None]
